FAERS Safety Report 9715444 (Version 10)
Quarter: 2014Q4

REPORT INFORMATION
  Report Type: Spontaneous
  Country: CA (occurrence: CA)
  Receive Date: 20131127
  Receipt Date: 20141107
  Transmission Date: 20150529
  Serious: Yes (Other)
  Sender: FDA-Public Use
  Company Number: CA-ROCHE-1302303

PATIENT
  Age: 44 Year
  Sex: Female

DRUGS (7)
  1. PREDNISONE. [Concomitant]
     Active Substance: PREDNISONE
  2. XOLAIR [Suspect]
     Active Substance: OMALIZUMAB
     Indication: ASTHMA
     Route: 058
     Dates: start: 20110303
  3. XOLAIR [Suspect]
     Active Substance: OMALIZUMAB
     Route: 058
     Dates: start: 20131121
  4. SYMBICORT [Concomitant]
     Active Substance: BUDESONIDE\FORMOTEROL FUMARATE DIHYDRATE
  5. XOLAIR [Suspect]
     Active Substance: OMALIZUMAB
     Route: 058
     Dates: start: 20140227
  6. CELEXA [Concomitant]
     Active Substance: CITALOPRAM HYDROBROMIDE
  7. XOLAIR [Suspect]
     Active Substance: OMALIZUMAB
     Route: 065
     Dates: start: 201404, end: 201404

REACTIONS (28)
  - Breast cancer [Unknown]
  - Influenza [Not Recovered/Not Resolved]
  - Coeliac disease [Unknown]
  - Nasal congestion [Unknown]
  - Abdominal distension [Unknown]
  - Skin oedema [Unknown]
  - Urticaria [Unknown]
  - Obstructive airways disorder [Not Recovered/Not Resolved]
  - Migraine [Not Recovered/Not Resolved]
  - Tendonitis [Unknown]
  - Ear pain [Unknown]
  - Wheezing [Unknown]
  - Blood pressure decreased [Unknown]
  - Productive cough [Not Recovered/Not Resolved]
  - Forced expiratory volume decreased [Unknown]
  - Rib fracture [Unknown]
  - Lung infection [Recovered/Resolved]
  - Cough [Unknown]
  - Oropharyngeal pain [Unknown]
  - Pruritus generalised [Unknown]
  - Flatulence [Unknown]
  - Respiratory disorder [Unknown]
  - Lung hyperinflation [Unknown]
  - Hypoventilation [Unknown]
  - Pyrexia [Recovered/Resolved]
  - Pain [Unknown]
  - Tooth abscess [Unknown]
  - Breast pain [Unknown]

NARRATIVE: CASE EVENT DATE: 20120814
